FAERS Safety Report 11284139 (Version 1)
Quarter: 2015Q3

REPORT INFORMATION
  Report Type: Spontaneous
  Country: US (occurrence: US)
  Receive Date: 20150720
  Receipt Date: 20150720
  Transmission Date: 20151125
  Serious: Yes (Other)
  Sender: FDA-Public Use
  Company Number: US-TEVA-578758ACC

PATIENT
  Age: 29 Year
  Sex: Female
  Weight: 64.47 kg

DRUGS (2)
  1. ADAPALENE EXTERNAL GEL [Concomitant]
     Route: 065
     Dates: start: 20150616
  2. PARAGARD T 380A [Suspect]
     Active Substance: COPPER
     Indication: CONTRACEPTION
     Route: 015
     Dates: start: 2013, end: 20150709

REACTIONS (3)
  - Device dislocation [Recovered/Resolved]
  - Coital bleeding [Unknown]
  - Embedded device [Recovered/Resolved]

NARRATIVE: CASE EVENT DATE: 20150624
